FAERS Safety Report 8799605 (Version 1)
Quarter: 2012Q4

REPORT INFORMATION
  Report Type: 
  Country: US (occurrence: US)
  Receive Date: 20120919
  Receipt Date: 20120919
  Transmission Date: 20130627
  Serious: Yes (Other)
  Sender: FDA-Public Use
  Company Number: US-BAYER-2012-095151

PATIENT
  Age: 54 Year
  Sex: Female
  Weight: 65 kg

DRUGS (13)
  1. ALEVE CAPLET/TABLET,MIDOL EXTENDED RELIEF CAPLET [Suspect]
     Indication: PAIN
     Dosage: 220 mg, PRN
     Dates: start: 2012
  2. BAYER GENUINE ASPIRIN ORIGINAL STRENGTH [Suspect]
     Indication: PRODUCT USED FOR UNKNOWN INDICATION
  3. IBUPROFEN [Suspect]
     Indication: PRODUCT USED FOR UNKNOWN INDICATION
  4. LYRICA [Concomitant]
     Indication: HYPOAESTHESIA
     Dosage: UNK
  5. LYRICA [Concomitant]
     Indication: PAIN IN EXTREMITY
  6. GABAPENTIN [Concomitant]
     Indication: NEURALGIA
     Dosage: 50 mg, BID
     Dates: start: 2012, end: 2012
  7. GABAPENTIN [Concomitant]
     Indication: HYPOAESTHESIA
  8. DEXEDRINE [Concomitant]
     Indication: ATTENTION DEFICIT/HYPERACTIVITY DISORDER
     Dosage: 5 mg, BID
  9. OXYCODONE [Concomitant]
     Indication: BACK PAIN
     Dosage: 5 mg, TID
  10. ALBUTEROL SULFATE [Concomitant]
     Indication: ASTHMA
  11. ANTIDEPRESSANTS [Concomitant]
  12. UNSPECIFIED MEDICATIONS [Concomitant]
  13. UNSPECIFIED PAIN MEDICATIONS [Concomitant]
     Indication: PAIN

REACTIONS (17)
  - Insomnia [None]
  - Lethargy [Not Recovered/Not Resolved]
  - Emotional disorder [None]
  - Pain [Not Recovered/Not Resolved]
  - Vision blurred [Recovered/Resolved]
  - Disturbance in attention [Recovered/Resolved]
  - Dyspnoea [Not Recovered/Not Resolved]
  - Adverse drug reaction [None]
  - Hypoaesthesia [None]
  - Adverse drug reaction [None]
  - Flushing [Recovered/Resolved]
  - Feeling abnormal [Not Recovered/Not Resolved]
  - Abdominal distension [Recovered/Resolved]
  - Adverse drug reaction [None]
  - Gait disturbance [None]
  - Pain [None]
  - Depression [None]
